FAERS Safety Report 4529627-3 (Version None)
Quarter: 2004Q4

REPORT INFORMATION
  Report Type: 
  Country: None (occurrence: None)
  Receive Date: 20041214
  Receipt Date: 20041202
  Transmission Date: 20050328
  Serious: Yes (Life-Threatening, Hospitalization, Disabling)
  Sender: FDA-Public Use
  Company Number: 2004215042US

PATIENT
  Age: 16 Year
  Sex: Male

DRUGS (4)
  1. GENOTROPIN [Suspect]
     Indication: HYPOPITUITARISM
     Dosage: 12.6MG WEEKLY
     Dates: start: 20040505, end: 20040505
  2. CALCIUM (CALCIUM) [Concomitant]
  3. CARBAMAZEPINE [Concomitant]
  4. ACETYLSALICYLIC ACID (ACETYLSALICYLIC ACID) [Concomitant]

REACTIONS (1)
  - CEREBROVASCULAR ACCIDENT [None]
